FAERS Safety Report 25810554 (Version 1)
Quarter: 2025Q3

REPORT INFORMATION
  Report Type: Spontaneous
  Country: EU (occurrence: EU)
  Receive Date: 20250917
  Receipt Date: 20250917
  Transmission Date: 20251021
  Serious: Yes (Death, Other)
  Sender: GRANULES PHARMACEUTICALS INC
  Company Number: EU-GRANULES-IT-2025GRALIT00525

PATIENT
  Age: 71 Year
  Sex: Male

DRUGS (2)
  1. SILDENAFIL CITRATE [Suspect]
     Active Substance: SILDENAFIL CITRATE
     Indication: Hypertension
     Route: 065
  2. PROSTAGLANDIN E1 [Concomitant]
     Active Substance: ALPROSTADIL
     Indication: Product used for unknown indication
     Route: 065

REACTIONS (6)
  - Haemorrhage intracranial [Fatal]
  - Haemothorax [Fatal]
  - Mediastinal haemorrhage [Fatal]
  - Aortic dissection [Fatal]
  - Arteriosclerosis [Fatal]
  - Coronary artery disease [Fatal]
